FAERS Safety Report 6975989-7 (Version None)
Quarter: 2010Q3

REPORT INFORMATION
  Report Type: 
  Country: None (occurrence: None)
  Receive Date: 20100910
  Receipt Date: 20090409
  Transmission Date: 20110219
  Serious: No
  Sender: FDA-Public Use
  Company Number: US-WYE-H08917909

PATIENT
  Age: 46 Year
  Sex: Male

DRUGS (2)
  1. PRISTIQ [Suspect]
     Indication: MAJOR DEPRESSION
     Route: 048
  2. PRISTIQ [Suspect]
     Route: 048

REACTIONS (1)
  - TRISMUS [None]
